FAERS Safety Report 5401991-2 (Version None)
Quarter: 2007Q3

REPORT INFORMATION
  Report Type: 
  Country: None (occurrence: None)
  Receive Date: 20070727
  Receipt Date: 20070717
  Transmission Date: 20080115
  Serious: Yes (Hospitalization, Other)
  Sender: FDA-Public Use
  Company Number: US020696

PATIENT
  Age: 86 Year
  Sex: Female

DRUGS (5)
  1. TRISENOX [Suspect]
     Indication: ACUTE PROMYELOCYTIC LEUKAEMIA
     Dosage: 6.105 MG QD INTRAVENOUS DRIP
     Route: 041
     Dates: start: 20061003, end: 20061027
  2. CYTARABINE [Concomitant]
  3. PREDNISOLONE ACETATE [Concomitant]
  4. METHOTREXATE [Concomitant]
  5. CALCIUM GLUCONATE [Concomitant]

REACTIONS (5)
  - ARRHYTHMIA [None]
  - HAEMOGLOBIN DECREASED [None]
  - HYPOCALCAEMIA [None]
  - NEUTROPHIL COUNT DECREASED [None]
  - VENTRICULAR EXTRASYSTOLES [None]
